FAERS Safety Report 15496458 (Version 2)
Quarter: 2019Q1

REPORT INFORMATION
  Report Type: Spontaneous
  Country: JP (occurrence: JP)
  Receive Date: 20181012
  Receipt Date: 20190318
  Transmission Date: 20190417
  Serious: Yes (Life-Threatening, Other)
  Sender: FDA-Public Use
  Company Number: JP-009507513-1810JPN000960J

PATIENT
  Age: 77 Year
  Sex: Female
  Weight: 30 kg

DRUGS (3)
  1. FENTANYL. [Suspect]
     Active Substance: FENTANYL
     Indication: ANAESTHESIA PROCEDURE
     Dosage: 0.6 MILLIGRAM
     Route: 042
     Dates: start: 20181003, end: 20181003
  2. ESLAX INTRAVENOUS 25MG/2.5ML [Suspect]
     Active Substance: ROCURONIUM BROMIDE
     Indication: NEUROMUSCULAR BLOCKING THERAPY
     Dosage: 160 MILLIGRAM
     Route: 042
     Dates: start: 20181003, end: 20181003
  3. REMIFENTANIL DAIICHI SANKYO [Concomitant]
     Active Substance: REMIFENTANIL HYDROCHLORIDE
     Indication: PAIN
     Dosage: UNK
     Route: 065

REACTIONS (5)
  - Tachypnoea [Unknown]
  - Depressed level of consciousness [Recovered/Resolved]
  - Recurrence of neuromuscular blockade [Recovered/Resolved]
  - Respiratory depression [Recovered/Resolved]
  - Overdose [Unknown]

NARRATIVE: CASE EVENT DATE: 20181003
